FAERS Safety Report 24652865 (Version 2)
Quarter: 2025Q3

REPORT INFORMATION
  Report Type: Report from Study
  Country: AU (occurrence: AU)
  Receive Date: 20241122
  Receipt Date: 20250703
  Transmission Date: 20251020
  Serious: Yes (Other)
  Sender: NOVARTIS
  Company Number: AU-002147023-NVSC2024AU201251

PATIENT
  Sex: Male

DRUGS (1)
  1. KYMRIAH [Suspect]
     Active Substance: TISAGENLECLEUCEL
     Indication: Acute lymphocytic leukaemia
     Route: 065
     Dates: start: 20240716

REACTIONS (4)
  - Acute lymphocytic leukaemia recurrent [Unknown]
  - Post-depletion B-cell recovery [Unknown]
  - Treatment failure [Unknown]
  - Loss of therapeutic response [Unknown]
